FAERS Safety Report 5021195-5 (Version None)
Quarter: 2006Q2

REPORT INFORMATION
  Report Type: 
  Country: None (occurrence: None)
  Receive Date: 20060608
  Receipt Date: 20060605
  Transmission Date: 20061013
  Serious: Yes (Death, Life-Threatening, Hospitalization)
  Sender: FDA-Public Use
  Company Number: US-SANOFI-SYNTHELABO-F01200601370

PATIENT

DRUGS (5)
  1. ERBITUX [Suspect]
     Dosage: UNK
     Route: 042
     Dates: start: 20050727, end: 20050727
  2. FLUOROURACIL [Suspect]
     Dosage: UNK
     Route: 042
     Dates: start: 20050727, end: 20050727
  3. LEUCOVORIN [Suspect]
     Dosage: UNK
     Route: 042
     Dates: start: 20050727, end: 20050727
  4. AVASTIN [Suspect]
     Dosage: UNK
     Route: 042
     Dates: start: 20050727, end: 20050727
  5. OXALIPLATIN [Suspect]
     Indication: COLORECTAL CANCER
     Dosage: UNK
     Route: 042
     Dates: start: 20050727, end: 20050727

REACTIONS (8)
  - DYSPNOEA [None]
  - PLEURAL EFFUSION [None]
  - PNEUMONITIS [None]
  - PULMONARY EMBOLISM [None]
  - PULMONARY FIBROSIS [None]
  - RESPIRATORY FAILURE [None]
  - THERAPY NON-RESPONDER [None]
  - THROMBOSIS [None]
